FAERS Safety Report 17920806 (Version 2)
Quarter: 2020Q3

REPORT INFORMATION
  Report Type: Report from Study
  Country: AT (occurrence: AT)
  Receive Date: 20200622
  Receipt Date: 20200707
  Transmission Date: 20201103
  Serious: Yes (Hospitalization)
  Sender: FDA-Public Use
  Company Number: AT-EMD SERONO-9169666

PATIENT
  Sex: Female

DRUGS (2)
  1. REBIF [Suspect]
     Active Substance: INTERFERON BETA-1A
     Indication: PRODUCT USED FOR UNKNOWN INDICATION
     Dosage: TITRATION (REBIF 22 IN 0.25ML )
     Dates: start: 20200525, end: 2020
  2. REBIF [Suspect]
     Active Substance: INTERFERON BETA-1A
     Dosage: TITRATION (22 IN 0.5ML)
     Dates: start: 2020, end: 202006

REACTIONS (3)
  - Drug intolerance [Unknown]
  - Pain in extremity [Unknown]
  - Burning sensation [Unknown]

NARRATIVE: CASE EVENT DATE: 2020
